FAERS Safety Report 24994457 (Version 2)
Quarter: 2025Q3

REPORT INFORMATION
  Report Type: Report from Study
  Country: US (occurrence: US)
  Receive Date: 20250221
  Receipt Date: 20250721
  Transmission Date: 20251020
  Serious: Yes (Other)
  Sender: UCB
  Company Number: US-UCBSA-2025009078

PATIENT
  Age: 21 Year
  Sex: Female
  Weight: 48.2 kg

DRUGS (1)
  1. FINTEPLA [Suspect]
     Active Substance: FENFLURAMINE
     Indication: Lennox-Gastaut syndrome

REACTIONS (2)
  - Mitral valve incompetence [Unknown]
  - Right atrial pressure increased [Unknown]

NARRATIVE: CASE EVENT DATE: 20250211
